FAERS Safety Report 15833383 (Version 1)
Quarter: 2019Q1

REPORT INFORMATION
  Report Type: Spontaneous
  Country: IT (occurrence: IT)
  Receive Date: 20190116
  Receipt Date: 20190116
  Transmission Date: 20190417
  Serious: Yes (Other)
  Sender: FDA-Public Use
  Company Number: IT-TAKEDA-2019TUS001432

PATIENT
  Age: 70 Year
  Sex: Male

DRUGS (3)
  1. BRINTELLIX [Suspect]
     Active Substance: VORTIOXETINE HYDROBROMIDE
     Indication: BIPOLAR II DISORDER
     Dosage: 20 MG, QD
     Route: 048
     Dates: start: 20181119, end: 20190110
  2. TRITTICO [Concomitant]
     Active Substance: TRAZODONE HYDROCHLORIDE
     Indication: BIPOLAR II DISORDER
     Dosage: 150 MG, QD
     Route: 048
     Dates: start: 20190102, end: 20190108
  3. DELORAZEPAM [Concomitant]
     Active Substance: DELORAZEPAM
     Indication: BIPOLAR II DISORDER
     Dosage: 2 MG, QD
     Route: 048
     Dates: start: 20180915, end: 20190110

REACTIONS (2)
  - Product use in unapproved indication [Unknown]
  - Drug ineffective [Unknown]

NARRATIVE: CASE EVENT DATE: 20190108
